FAERS Safety Report 17313394 (Version 1)
Quarter: 2020Q1

REPORT INFORMATION
  Report Type: Spontaneous
  Country: EG (occurrence: EG)
  Receive Date: 20200124
  Receipt Date: 20200124
  Transmission Date: 20200409
  Serious: Yes (Other)
  Sender: FDA-Public Use
  Company Number: EG-HIKMA PHARMACEUTICALS USA INC.-EG-H14001-20-00204

PATIENT
  Age: 55 Year
  Sex: Female

DRUGS (2)
  1. CYCRAM [Suspect]
     Active Substance: CYCLOPHOSPHAMIDE
     Indication: LYMPHOMA
     Route: 042
     Dates: start: 20190422, end: 20190624
  2. ADRICIN (DOXORUBICIN HYDROCHLORIDE) [Suspect]
     Active Substance: DOXORUBICIN HYDROCHLORIDE
     Indication: LYMPHOMA
     Route: 042
     Dates: start: 20190422, end: 20190624

REACTIONS (4)
  - Deep vein thrombosis [Not Recovered/Not Resolved]
  - Inflammation [Unknown]
  - Erythema [Unknown]
  - Feeling cold [Unknown]

NARRATIVE: CASE EVENT DATE: 20190624
